FAERS Safety Report 7154624-1 (Version None)
Quarter: 2010Q4

REPORT INFORMATION
  Report Type: 
  Country: None (occurrence: None)
  Receive Date: 20101214
  Receipt Date: 20091123
  Transmission Date: 20110411
  Serious: No
  Sender: FDA-Public Use
  Company Number: US-AMGEN-KDL369301

PATIENT

DRUGS (9)
  1. ENBREL [Suspect]
     Indication: RHEUMATOID ARTHRITIS
     Dosage: 50 MG, QWK
     Route: 058
     Dates: start: 20090912, end: 20091015
  2. METHOTREXATE [Concomitant]
     Dosage: UNK UNK, UNK
  3. DULOXETINE HYDROCHLORIDE [Concomitant]
  4. UNSPECIFIED MEDICATION [Concomitant]
  5. OMEPRAZOLE [Concomitant]
  6. HYDROCODONE [Concomitant]
  7. SIMVASTATIN [Concomitant]
  8. ACETYLSALICYLIC ACID [Concomitant]
  9. AMITRIPTYLINE [Concomitant]

REACTIONS (7)
  - DIZZINESS [None]
  - ERYTHEMA [None]
  - INJECTION SITE ERYTHEMA [None]
  - INJECTION SITE PRURITUS [None]
  - INJECTION SITE RASH [None]
  - INJECTION SITE REACTION [None]
  - INJECTION SITE WARMTH [None]
